FAERS Safety Report 20988011 (Version 4)
Quarter: 2022Q3

REPORT INFORMATION
  Report Type: Report from Study
  Country: IT (occurrence: IT)
  Receive Date: 20220621
  Receipt Date: 20220713
  Transmission Date: 20221027
  Serious: Yes (Death, Life-Threatening)
  Sender: FDA-Public Use
  Company Number: IT-PFIZER INC-PV202200003767

PATIENT
  Age: 51 Year
  Sex: Female

DRUGS (7)
  1. GEMTUZUMAB OZOGAMICIN [Suspect]
     Active Substance: GEMTUZUMAB OZOGAMICIN
     Indication: Chemotherapy
     Dosage: 3 MG/M2, DAILY
     Route: 042
     Dates: start: 20220603, end: 20220603
  2. CYTARABINE [Suspect]
     Active Substance: CYTARABINE
     Indication: Chemotherapy
     Dosage: 500 MG/M2, 2X/DAY
     Route: 042
     Dates: start: 20220603, end: 20220608
  3. DAUNORUBICIN HYDROCHLORIDE [Suspect]
     Active Substance: DAUNORUBICIN HYDROCHLORIDE
     Indication: Chemotherapy
     Dosage: 50 MG/M2, DAILY
     Route: 042
     Dates: start: 20220606, end: 20220608
  4. DOXAZOSIN [Concomitant]
     Active Substance: DOXAZOSIN MESYLATE
     Dosage: 1 DF, DAILY
     Dates: start: 2020
  5. DELORAZEPAM [Concomitant]
     Active Substance: DELORAZEPAM
     Dosage: 20 DROP, 3X/DAY
     Dates: start: 202203
  6. CLOMIPRAMINE [Concomitant]
     Active Substance: CLOMIPRAMINE
     Dosage: 75 MG, 2X/DAY
     Dates: start: 202203
  7. BUDESONIDE\FORMOTEROL [Concomitant]
     Active Substance: BUDESONIDE\FORMOTEROL
     Dosage: 2 PUFF/DIE
     Dates: start: 2020

REACTIONS (1)
  - Shock [Fatal]

NARRATIVE: CASE EVENT DATE: 20220614
